FAERS Safety Report 12919640 (Version 2)
Quarter: 2017Q1

REPORT INFORMATION
  Report Type: Spontaneous
  Country: AT (occurrence: AT)
  Receive Date: 20161108
  Receipt Date: 20170111
  Transmission Date: 20170428
  Serious: Yes (Other)
  Sender: FDA-Public Use
  Company Number: AT-ROCHE-1851722

PATIENT
  Sex: Male
  Weight: 120 kg

DRUGS (2)
  1. XOLAIR [Suspect]
     Active Substance: OMALIZUMAB
     Indication: ASTHMA
     Route: 058
  2. XOLAIR [Suspect]
     Active Substance: OMALIZUMAB
     Indication: MITE ALLERGY

REACTIONS (7)
  - Peripheral coldness [Unknown]
  - Product use issue [Unknown]
  - Peripheral arterial occlusive disease [Unknown]
  - Pain in extremity [Unknown]
  - Dyspnoea [Unknown]
  - Intermittent claudication [Unknown]
  - Muscle spasms [Unknown]
